FAERS Safety Report 5312300-1 (Version None)
Quarter: 2007Q2

REPORT INFORMATION
  Report Type: 
  Country: None (occurrence: None)
  Receive Date: 20070430
  Receipt Date: 20060814
  Transmission Date: 20071010
  Serious: No
  Sender: FDA-Public Use
  Company Number: 2006UW16153

PATIENT
  Age: 38 Year
  Sex: Male
  Weight: 117 kg

DRUGS (5)
  1. NEXIUM [Suspect]
     Indication: GASTROOESOPHAGEAL REFLUX DISEASE
     Route: 048
  2. TRILEPTAL [Concomitant]
  3. MOBIC [Concomitant]
  4. AMBIEN [Concomitant]
  5. ATIVAN [Concomitant]

REACTIONS (5)
  - DRY MOUTH [None]
  - DYSARTHRIA [None]
  - FEELING JITTERY [None]
  - NERVOUSNESS [None]
  - VISION BLURRED [None]
